FAERS Safety Report 10052026 (Version 1)
Quarter: 2014Q2

REPORT INFORMATION
  Report Type: Spontaneous
  Country: US (occurrence: US)
  Receive Date: 20140402
  Receipt Date: 20140402
  Transmission Date: 20141212
  Serious: Yes (Other)
  Sender: FDA-Public Use
  Company Number: US-JNJFOC-20140312338

PATIENT
  Age: 11 Year
  Sex: Male
  Weight: 34.47 kg

DRUGS (8)
  1. SUDAFED CHILDRENS NASAL DECONG GRAPE [Suspect]
     Route: 048
  2. SUDAFED CHILDRENS NASAL DECONG GRAPE [Suspect]
     Indication: SINUS DISORDER
     Dosage: 2 TSP
     Route: 048
     Dates: start: 20140217, end: 20140224
  3. SINGULAIR [Concomitant]
     Indication: MULTIPLE ALLERGIES
     Route: 065
  4. NASONEX [Concomitant]
     Indication: MULTIPLE ALLERGIES
     Dosage: 1 SQUIRT DAILY EACH
     Route: 065
  5. Q-VAR [Concomitant]
     Indication: MULTIPLE ALLERGIES
     Dosage: 80MCG/1 SQUIRT PM PR
     Route: 065
  6. VENTOLIN [Concomitant]
     Indication: MULTIPLE ALLERGIES
     Dosage: 90MCG/1 SQUIRT PRN
     Route: 065
  7. CETIRIZINE [Concomitant]
     Indication: MULTIPLE ALLERGIES
     Dosage: 1 TSP
     Route: 065
  8. ALL OTHER THERAPEUTIC DRUG [Concomitant]
     Indication: MULTIPLE ALLERGIES
     Route: 065

REACTIONS (1)
  - Hallucination [Recovering/Resolving]
